FAERS Safety Report 19091474 (Version 3)
Quarter: 2021Q3

REPORT INFORMATION
  Report Type: Report from Study
  Country: CO (occurrence: CO)
  Receive Date: 20210405
  Receipt Date: 20210816
  Transmission Date: 20211014
  Serious: Yes (Other)
  Sender: FDA-Public Use
  Company Number: NVSC2021CO031389

PATIENT
  Sex: Male
  Weight: 98 kg

DRUGS (6)
  1. VOTRIENT [Suspect]
     Active Substance: PAZOPANIB HYDROCHLORIDE
     Dosage: 800 MG, QD (2 TABLETS OF 400 MG)
     Route: 048
     Dates: start: 20210208
  2. ESOMEPRAZOLE. [Suspect]
     Active Substance: ESOMEPRAZOLE MAGNESIUM
     Indication: GASTRITIS
     Dosage: 1 DF, QD
     Route: 048
  3. VOTRIENT [Suspect]
     Active Substance: PAZOPANIB HYDROCHLORIDE
     Indication: METASTATIC RENAL CELL CARCINOMA
     Dosage: 800 MG, QD (2 TABLETS OF 400 MG)
     Route: 048
     Dates: start: 202011
  4. METFORMIN [Suspect]
     Active Substance: METFORMIN HYDROCHLORIDE
     Indication: BLOOD GLUCOSE
     Dosage: 850 MG (2 TABLETS DAILY)
     Route: 048
  5. ATORVASTATIN [Suspect]
     Active Substance: ATORVASTATIN
     Indication: BLOOD CHOLESTEROL
     Dosage: 20 MG, QD
     Route: 048
  6. VOTRIENT [Suspect]
     Active Substance: PAZOPANIB HYDROCHLORIDE
     Dosage: 800 MG, QD
     Route: 048

REACTIONS (22)
  - Oral pain [Unknown]
  - Oral discomfort [Unknown]
  - Scratch [Unknown]
  - Transaminases increased [Recovered/Resolved]
  - Oral mucosal exfoliation [Unknown]
  - Food intolerance [Unknown]
  - Gastrointestinal sounds abnormal [Unknown]
  - Off label use [Unknown]
  - Endocrine disorder [Unknown]
  - Hair colour changes [Unknown]
  - Alopecia [Unknown]
  - Cortisol decreased [Unknown]
  - Skin haemorrhage [Unknown]
  - Glucocorticoid deficiency [Unknown]
  - Hepatotoxicity [Unknown]
  - Liver disorder [Unknown]
  - Thyroid hormones increased [Unknown]
  - Weight decreased [Unknown]
  - Ageusia [Unknown]
  - Pruritus [Unknown]
  - Diarrhoea [Unknown]
  - Rash macular [Unknown]
